FAERS Safety Report 10489777 (Version 1)
Quarter: 2014Q4

REPORT INFORMATION
  Report Type: Spontaneous
  Country: DK (occurrence: DK)
  Receive Date: 20141002
  Receipt Date: 20141002
  Transmission Date: 20150528
  Serious: Yes (Hospitalization)
  Sender: FDA-Public Use
  Company Number: DK-TEVA-512186ISR

PATIENT
  Age: 79 Year
  Sex: Female

DRUGS (13)
  1. IBUPROFEN. [Suspect]
     Active Substance: IBUPROFEN
     Indication: PAIN
     Dosage: STRENGTH: 400 MG
     Route: 048
     Dates: end: 20140830
  2. BUDENOFALK [Concomitant]
     Active Substance: BUDESONIDE
  3. SYMBICORT FORTE TURBOHALER [Concomitant]
  4. ASASANTIN RETARD [Suspect]
     Active Substance: ASPIRIN\DIPYRIDAMOLE
     Indication: CEREBROVASCULAR ACCIDENT
     Dosage: STRENGTH: 200 + 25 MG. PROLONGED-RELEASE CAPSULE, HARD
     Route: 048
     Dates: start: 2006, end: 20140905
  5. PINEX [Concomitant]
     Active Substance: ACETAMINOPHEN
  6. BONVIVA [Concomitant]
     Active Substance: IBANDRONATE SODIUM
  7. BRICANYL [Concomitant]
     Active Substance: TERBUTALINE SULFATE
  8. BRENTAN [Concomitant]
     Active Substance: HYDROCORTISONE\MICONAZOLE
  9. SERTRALINHYDROCHLORID [Concomitant]
  10. SPIRIVA RESPIMAT [Concomitant]
     Active Substance: TIOTROPIUM BROMIDE
  11. TRADOLAN [Concomitant]
     Active Substance: TRAMADOL
  12. HJERDYL [Suspect]
     Active Substance: ASPIRIN
     Indication: ARTERIOSCLEROSIS
     Dosage: STRENGTH: 75 MG
     Route: 048
  13. PREDNISOLON [Concomitant]
     Active Substance: PREDNISOLONE
     Indication: ILL-DEFINED DISORDER
     Dosage: DOSE: 1 TABLET DAGLIGT, STRENGTH: 37,5 MG
     Route: 048
     Dates: start: 20140830, end: 20140905

REACTIONS (5)
  - Pallor [Unknown]
  - Faeces discoloured [Unknown]
  - Gastric ulcer haemorrhage [Unknown]
  - Diarrhoea [Unknown]
  - Vomiting [Unknown]

NARRATIVE: CASE EVENT DATE: 20140831
